FAERS Safety Report 5835390-6 (Version None)
Quarter: 2008Q3

REPORT INFORMATION
  Report Type: 
  Country: None (occurrence: None)
  Receive Date: 20080806
  Receipt Date: 20080730
  Transmission Date: 20090109
  Serious: Yes (Hospitalization)
  Sender: FDA-Public Use
  Company Number: FR-MERCK-0808FRA00003

PATIENT
  Age: 59 Year
  Sex: Male

DRUGS (10)
  1. PRIMAXIN [Suspect]
     Indication: INFECTION
     Route: 042
     Dates: end: 20080706
  2. PRIMAXIN [Suspect]
     Route: 042
     Dates: start: 20080701
  3. ESOMEPRAZOLE MAGNESIUM [Suspect]
     Route: 042
     Dates: end: 20080706
  4. METOCLOPRAMIDE HYDROCHLORIDE [Concomitant]
     Route: 048
  5. CEFTAZIDIME [Concomitant]
     Indication: INFECTION
     Route: 065
  6. PHYTONADIONE [Concomitant]
     Route: 065
  7. DEXAMETHASONE AND TOBRAMYCIN [Concomitant]
     Indication: EYE INFECTION
     Route: 047
  8. HEPATITIS B VIRUS VACCINE (UNSPECIFIED) [Concomitant]
     Indication: PROPHYLAXIS
     Route: 030
     Dates: start: 20080702, end: 20080702
  9. OFLOXACIN [Concomitant]
     Indication: INFECTION
     Route: 042
  10. AMPHOTERICIN B [Concomitant]
     Indication: INFECTION
     Route: 042

REACTIONS (1)
  - CHOLESTASIS [None]
